FAERS Safety Report 5895019-8 (Version None)
Quarter: 2008Q3

REPORT INFORMATION
  Report Type: 
  Country: None (occurrence: None)
  Receive Date: 20080924
  Receipt Date: 20080911
  Transmission Date: 20090109
  Serious: Yes (Other)
  Sender: FDA-Public Use
  Company Number: BR-PFIZER INC-2007098877

PATIENT
  Sex: Male
  Weight: 60 kg

DRUGS (5)
  1. FRONTAL [Suspect]
     Indication: AUTISM
     Route: 048
     Dates: start: 20060101
  2. FRONTAL [Suspect]
     Indication: AGGRESSION
  3. RISPERDAL [Concomitant]
     Route: 048
     Dates: end: 20070101
  4. HALDOL [Concomitant]
     Route: 048
     Dates: end: 20070101
  5. FLUOXETINE HYDROCHLORIDE [Concomitant]
     Route: 048
     Dates: end: 20070101

REACTIONS (9)
  - AGGRESSION [None]
  - DECREASED APPETITE [None]
  - DRUG INEFFECTIVE [None]
  - EUPHORIC MOOD [None]
  - IRRITABILITY [None]
  - POLYDIPSIA [None]
  - RESTLESSNESS [None]
  - WEIGHT DECREASED [None]
  - WEIGHT INCREASED [None]
